FAERS Safety Report 14656913 (Version 1)
Quarter: 2018Q1

REPORT INFORMATION
  Report Type: Spontaneous
  Country: US (occurrence: US)
  Receive Date: 20180319
  Receipt Date: 20180319
  Transmission Date: 20180509
  Serious: No
  Sender: FDA-Public Use
  Company Number: US-SA-2017SA147046

PATIENT
  Age: 63 Year
  Sex: Female
  Weight: 72.57 kg

DRUGS (8)
  1. NASACORT ALLERGY 24HR [Suspect]
     Active Substance: TRIAMCINOLONE ACETONIDE
     Indication: SINUSITIS
     Dosage: INHALER SPRAY
     Route: 065
     Dates: start: 20170726, end: 20170728
  2. CEFTIN [Concomitant]
     Active Substance: CEFUROXIME AXETIL
     Indication: SINUSITIS
     Route: 065
     Dates: start: 20170726, end: 20170804
  3. CLARITIN [Concomitant]
     Active Substance: LORATADINE
  4. HYDROCHLOROTHIAZIDE WITH TRIAMTERENE [Concomitant]
     Active Substance: HYDROCHLOROTHIAZIDE\TRIAMTERENE
     Indication: BLOOD PRESSURE MEASUREMENT
     Route: 065
  5. TOPROL XL [Concomitant]
     Active Substance: METOPROLOL SUCCINATE
     Indication: BLOOD PRESSURE MEASUREMENT
     Route: 065
  6. CEFTIN [Concomitant]
     Active Substance: CEFUROXIME AXETIL
     Indication: EAR INFECTION
     Route: 065
     Dates: start: 20170726, end: 20170804
  7. RANITIDINE. [Concomitant]
     Active Substance: RANITIDINE
     Indication: GASTROOESOPHAGEAL REFLUX DISEASE
     Route: 065
  8. NASACORT ALLERGY 24HR [Suspect]
     Active Substance: TRIAMCINOLONE ACETONIDE
     Indication: EAR INFECTION
     Dosage: INHALER SPRAY
     Route: 065
     Dates: start: 20170726, end: 20170728

REACTIONS (7)
  - Neck pain [Not Recovered/Not Resolved]
  - Muscular weakness [Unknown]
  - Condition aggravated [Unknown]
  - Palpitations [Recovered/Resolved]
  - Headache [Unknown]
  - Extrasystoles [Recovered/Resolved]
  - Feeling abnormal [Unknown]

NARRATIVE: CASE EVENT DATE: 20170726
